FAERS Safety Report 10452376 (Version 2)
Quarter: 2014Q4

REPORT INFORMATION
  Report Type: Spontaneous
  Country: JP (occurrence: JP)
  Receive Date: 20140915
  Receipt Date: 20141112
  Transmission Date: 20150528
  Serious: Yes (Other)
  Sender: FDA-Public Use
  Company Number: PHHY2014JP117858

PATIENT
  Age: 70 Year
  Sex: Female

DRUGS (1)
  1. GLIVEC [Suspect]
     Active Substance: IMATINIB MESYLATE
     Indication: GASTROINTESTINAL STROMAL TUMOUR
     Dosage: 300 MG, QD
     Route: 065
     Dates: start: 20060509

REACTIONS (3)
  - Tumour rupture [Unknown]
  - Oedema [Recovered/Resolved]
  - Gastric cancer [Unknown]

NARRATIVE: CASE EVENT DATE: 2006
